FAERS Safety Report 9752200 (Version 1)
Quarter: 2013Q4

REPORT INFORMATION
  Report Type: Spontaneous
  Country: US (occurrence: None)
  Receive Date: 20131212
  Receipt Date: 20131212
  Transmission Date: 20140711
  Serious: No
  Sender: FDA-Public Use
  Company Number: None

PATIENT
  Sex: Female
  Weight: 81.19 kg

DRUGS (18)
  1. LISINOPRIL [Suspect]
  2. DILTIAZEM [Suspect]
  3. AMITRIPTYLIN [Concomitant]
  4. CLARINEX [Concomitant]
  5. CRESTOR [Concomitant]
  6. CITALOPRAM [Concomitant]
  7. AMLODIPINE BESYLATE [Concomitant]
  8. NASONEX SPRAY [Concomitant]
  9. FLEXERIL [Concomitant]
  10. LOSATAN [Concomitant]
  11. ATENOLOL [Concomitant]
  12. NEXIUM [Concomitant]
  13. EQUATE FIBER THERAPY [Concomitant]
  14. GREEN ALCOHOL [Concomitant]
  15. EPSOM SALT [Concomitant]
  16. ASPERCROME [Concomitant]
  17. HEALTH MART PAIN RELIEF CAPLETS [Concomitant]
  18. ACETAMINOPHEN [Concomitant]

REACTIONS (5)
  - Urticaria [None]
  - Influenza [None]
  - Cough [None]
  - Pain [None]
  - Pruritus [None]
